FAERS Safety Report 5661431-5 (Version None)
Quarter: 2008Q1

REPORT INFORMATION
  Report Type: 
  Country: None (occurrence: None)
  Receive Date: 20080311
  Receipt Date: 20080225
  Transmission Date: 20080703
  Serious: Yes (Other)
  Sender: FDA-Public Use
  Company Number: US-PFIZER INC-2008021396

PATIENT
  Sex: Female
  Weight: 49.9 kg

DRUGS (4)
  1. CHANTIX [Suspect]
     Indication: EX-SMOKER
     Dates: start: 20070801, end: 20080108
  2. NEURONTIN [Suspect]
     Indication: MYOTONIA
     Dosage: TEXT:300 MG TID EVERY DAY TDD:900 MG
  3. KLONOPIN [Concomitant]
  4. FLEXERIL [Concomitant]

REACTIONS (1)
  - MYOTONIA [None]
